FAERS Safety Report 21548865 (Version 1)
Quarter: 2022Q4

REPORT INFORMATION
  Report Type: Spontaneous
  Country: US (occurrence: US)
  Receive Date: 20221103
  Receipt Date: 20221103
  Transmission Date: 20230113
  Serious: No
  Sender: FDA-Public Use
  Company Number: US-PFIZER INC-202201273731

PATIENT
  Age: 71 Year
  Sex: Female

DRUGS (3)
  1. IBRANCE [Suspect]
     Active Substance: PALBOCICLIB
     Dosage: 125 MG, CYCLIC (TAKE 1 CAPSULE (125 MG) DAILY FOR 3 WEEKS, FOLLOWED BY 1 WEEK OFF)
     Dates: start: 20220902
  2. VITAMIN C [Suspect]
     Active Substance: ASCORBIC ACID
     Dosage: 500 MG, 2X/DAY
  3. VITAMIN C [Suspect]
     Active Substance: ASCORBIC ACID
     Dosage: 500 MG, 1X/DAY

REACTIONS (1)
  - Nausea [Recovering/Resolving]
